FAERS Safety Report 7133374-1 (Version None)
Quarter: 2010Q4

REPORT INFORMATION
  Report Type: 
  Country: None (occurrence: None)
  Receive Date: 20101202
  Receipt Date: 20101111
  Transmission Date: 20110411
  Serious: No
  Sender: FDA-Public Use
  Company Number: US-B.I. PHARMACEUTICALS,INC./RIDGEFIELD-2010-BP-12680BP

PATIENT
  Age: 21 Year
  Sex: Female

DRUGS (7)
  1. CATAPRES-TTS-1 [Suspect]
     Indication: TIC
     Dosage: 0.2 MG
     Route: 061
     Dates: start: 20040101
  2. ABILIFY [Concomitant]
     Indication: TIC
  3. ABILIFY [Concomitant]
     Indication: OBSESSIVE-COMPULSIVE DISORDER
  4. LEXAPRO [Concomitant]
     Indication: TIC
  5. LEXAPRO [Concomitant]
     Indication: OBSESSIVE-COMPULSIVE DISORDER
  6. CITALOPRAM HYDROBROMIDE [Concomitant]
     Indication: TIC
  7. CITALOPRAM HYDROBROMIDE [Concomitant]
     Indication: OBSESSIVE-COMPULSIVE DISORDER

REACTIONS (1)
  - TIC [None]
